FAERS Safety Report 7989343-2 (Version None)
Quarter: 2011Q4

REPORT INFORMATION
  Report Type: 
  Country: None (occurrence: None)
  Receive Date: 20111216
  Receipt Date: 20111216
  Transmission Date: 20120403
  Serious: Yes (Hospitalization)
  Sender: FDA-Public Use
  Company Number: None

PATIENT
  Age: 48 Year
  Sex: Male
  Weight: 80.7403 kg

DRUGS (3)
  1. SELZENTRY [Concomitant]
  2. ISENTRESS [Suspect]
     Indication: HIV INFECTION
     Dosage: 200MG BID PO
     Route: 048
     Dates: start: 20110415
  3. DESONIDE [Concomitant]

REACTIONS (1)
  - DIABETIC HYPEROSMOLAR COMA [None]
